FAERS Safety Report 7078585-9 (Version None)
Quarter: 2010Q4

REPORT INFORMATION
  Report Type: 
  Country: None (occurrence: None)
  Receive Date: 20101102
  Receipt Date: 20101019
  Transmission Date: 20110411
  Serious: Yes (Life-Threatening, Hospitalization)
  Sender: FDA-Public Use
  Company Number: GB-RANBAXY-2010R1-39052

PATIENT

DRUGS (6)
  1. AMPICILLIN SODIUM/SULBACTAM SODIUM [Suspect]
     Indication: CELLULITIS
     Dosage: 625 MG, UNK
     Route: 048
     Dates: start: 20100910, end: 20100917
  2. WARFARIN [Suspect]
     Indication: ATRIAL FIBRILLATION
     Dosage: 3 MG, UNK
     Route: 048
     Dates: start: 20040617
  3. DIGOXIN [Concomitant]
     Indication: ATRIAL FIBRILLATION
     Dosage: 250 UG, QD
     Route: 048
  4. FERROUS SULFATE TAB [Concomitant]
     Indication: ANAEMIA
     Dosage: 200 MG, BID
     Route: 048
  5. FUROSEMIDE [Concomitant]
     Indication: POLYURIA
     Dosage: 40 MG, QD
     Route: 048
  6. TAMSULOSIN [Concomitant]
     Dosage: 400 UG, QD
     Route: 048

REACTIONS (1)
  - INTERNATIONAL NORMALISED RATIO INCREASED [None]
